FAERS Safety Report 5675925-X (Version None)
Quarter: 2008Q1

REPORT INFORMATION
  Report Type: 
  Country: None (occurrence: None)
  Receive Date: 20080321
  Receipt Date: 20080318
  Transmission Date: 20080703
  Serious: Yes (Other)
  Sender: FDA-Public Use
  Company Number: B0512950A

PATIENT
  Age: 36 Year
  Sex: Male

DRUGS (2)
  1. VALTREX [Suspect]
     Indication: VARICELLA
     Dosage: 1000MG THREE TIMES PER DAY
     Route: 048
     Dates: start: 20080229, end: 20080306
  2. UNKNOWN DRUG [Concomitant]
     Indication: DRUG USE FOR UNKNOWN INDICATION
     Route: 065

REACTIONS (2)
  - ALANINE AMINOTRANSFERASE INCREASED [None]
  - DRUG ERUPTION [None]
